FAERS Safety Report 12889688 (Version 2)
Quarter: 2017Q1

REPORT INFORMATION
  Report Type: Report from Study
  Country: US (occurrence: US)
  Receive Date: 20161027
  Receipt Date: 20170303
  Transmission Date: 20170428
  Serious: Yes (Hospitalization, Other)
  Sender: FDA-Public Use
  Company Number: US-TEVA-707772USA

PATIENT
  Age: 58 Year
  Sex: Male

DRUGS (9)
  1. CLOZAPINE. [Suspect]
     Active Substance: CLOZAPINE
     Route: 065
  2. PSYLLIUM [Concomitant]
     Active Substance: PLANTAGO SEED
  3. OXYBUTYNIN [Concomitant]
     Active Substance: OXYBUTYNIN
  4. IRON [Concomitant]
     Active Substance: IRON
  5. DOCUSATE [Concomitant]
     Active Substance: DOCUSATE
  6. HALOPERIDOL DECANOATE. [Concomitant]
     Active Substance: HALOPERIDOL DECANOATE
     Dosage: 900 MILLIGRAM DAILY;
  7. ADVAIR DISKUS [Concomitant]
     Active Substance: FLUTICASONE PROPIONATE\SALMETEROL XINAFOATE
  8. LORATADINE. [Concomitant]
     Active Substance: LORATADINE
  9. LEVOTHYROXINE. [Concomitant]
     Active Substance: LEVOTHYROXINE

REACTIONS (3)
  - Agranulocytosis [Recovered/Resolved]
  - Infection [Unknown]
  - Granulocytopenia [Unknown]

NARRATIVE: CASE EVENT DATE: 20160922
